FAERS Safety Report 14156374 (Version 2)
Quarter: 2018Q1

REPORT INFORMATION
  Report Type: Spontaneous
  Country: US (occurrence: US)
  Receive Date: 20171103
  Receipt Date: 20180110
  Transmission Date: 20180508
  Serious: Yes (Other)
  Sender: FDA-Public Use
  Company Number: US-PFIZER INC-2017470064

PATIENT
  Age: 84 Year
  Sex: Female
  Weight: 65.77 kg

DRUGS (2)
  1. IBRANCE [Suspect]
     Active Substance: PALBOCICLIB
     Indication: BREAST CANCER METASTATIC
     Dosage: 125 MG, CYCLIC (1 CAPSULE FOR 21 DAYS AND THEN OFF FOR 7 DAYS
     Route: 048
     Dates: start: 20171025
  2. FASLODEX [Suspect]
     Active Substance: FULVESTRANT
     Dosage: UNK
     Dates: start: 201710

REACTIONS (3)
  - Feeling cold [Unknown]
  - Tumour marker increased [Unknown]
  - Lung infection [Unknown]

NARRATIVE: CASE EVENT DATE: 2017
